FAERS Safety Report 9392519 (Version 1)
Quarter: 2013Q3

REPORT INFORMATION
  Report Type: Spontaneous
  Country: US (occurrence: None)
  Receive Date: 20130708
  Receipt Date: 20130708
  Transmission Date: 20140515
  Serious: Yes (Hospitalization)
  Sender: FDA-Public Use
  Company Number: None

PATIENT
  Age: 70 Year
  Sex: Female
  Weight: 86.18 kg

DRUGS (2)
  1. BENICAR/HYDROCHLOROTHIAZIDE [Suspect]
     Indication: HYPERTENSION
     Dosage: ONE PILL DAILY PO
     Route: 048
     Dates: start: 20081230, end: 20130705
  2. PRAVASTATIN [Concomitant]

REACTIONS (4)
  - Nausea [None]
  - Diarrhoea [None]
  - Haematochezia [None]
  - White blood cells stool positive [None]
